FAERS Safety Report 26197283 (Version 2)
Quarter: 2025Q4

REPORT INFORMATION
  Report Type: Spontaneous
  Country: CA (occurrence: CA)
  Receive Date: 20251224
  Receipt Date: 20251229
  Transmission Date: 20260118
  Serious: Yes (Death, Life-Threatening, Other)
  Sender: GILEAD
  Company Number: CA-GILEAD-2025-0742502

PATIENT
  Age: 58 Year
  Sex: Male

DRUGS (1)
  1. YESCARTA [Suspect]
     Active Substance: AXICABTAGENE CILOLEUCEL
     Indication: Diffuse large B-cell lymphoma refractory
     Dosage: UNK
     Route: 065

REACTIONS (8)
  - Shock [Fatal]
  - Palliative care [Fatal]
  - Cardiomyopathy [Fatal]
  - Acute kidney injury [Fatal]
  - Atrial fibrillation [Fatal]
  - Cognitive disorder [Fatal]
  - Encephalopathy [Fatal]
  - Immune effector cell-associated neurotoxicity syndrome [Fatal]
